FAERS Safety Report 4445652-5 (Version None)
Quarter: 2004Q3

REPORT INFORMATION
  Report Type: 
  Country: None (occurrence: None)
  Receive Date: 20040802
  Receipt Date: 20040520
  Transmission Date: 20050211
  Serious: No
  Sender: FDA-Public Use
  Company Number: 2004-116751-NL

PATIENT
  Age: 44 Year
  Sex: Female
  Weight: 59.1 kg

DRUGS (5)
  1. NUVARING [Suspect]
     Indication: OSTEOPOROSIS
     Dosage: DF DAILY VAGINAL
     Route: 067
     Dates: start: 20040501
  2. PATANOL [Concomitant]
  3. CLARITIN [Concomitant]
  4. ASTELIN [Concomitant]
  5. OPTIVAR [Concomitant]

REACTIONS (4)
  - FATIGUE [None]
  - GENITAL PRURITUS FEMALE [None]
  - TYPE IV HYPERSENSITIVITY REACTION [None]
  - VAGINAL DISCHARGE [None]
